FAERS Safety Report 11787433 (Version 5)
Quarter: 2016Q1

REPORT INFORMATION
  Report Type: Report from Study
  Country: CO (occurrence: CO)
  Receive Date: 20151130
  Receipt Date: 20160107
  Transmission Date: 20160525
  Serious: Yes (Life-Threatening, Hospitalization, Other)
  Sender: FDA-Public Use
  Company Number: PHHY2015CO154550

PATIENT
  Age: 18 Year
  Sex: Female

DRUGS (7)
  1. AZATHIOPRINE. [Concomitant]
     Active Substance: AZATHIOPRINE
     Indication: IMMUNE THROMBOCYTOPENIC PURPURA
     Dosage: 100 MG, QD
     Route: 048
  2. REVOLADE [Suspect]
     Active Substance: ELTROMBOPAG
     Indication: IMMUNE THROMBOCYTOPENIC PURPURA
     Dosage: 25 MG, QD
     Route: 048
     Dates: start: 201506, end: 201509
  3. REVOLADE [Suspect]
     Active Substance: ELTROMBOPAG
     Dosage: 50 MG, QD
     Route: 048
     Dates: start: 201509, end: 20151207
  4. DEXAMETHASONE. [Concomitant]
     Active Substance: DEXAMETHASONE
     Indication: SURGICAL PRECONDITIONING
     Dosage: 40 MG, QD
     Route: 042
     Dates: start: 20151121
  5. ASCORBIC ACID. [Concomitant]
     Active Substance: ASCORBIC ACID
     Indication: URINARY TRACT INFECTION
     Dosage: 500 MG, QD
     Route: 048
  6. PREDNISOLONE. [Concomitant]
     Active Substance: PREDNISOLONE
     Indication: IMMUNE THROMBOCYTOPENIC PURPURA
     Dosage: 15 MG, QD
     Route: 048
  7. CIPROFLOXACIN. [Concomitant]
     Active Substance: CIPROFLOXACIN
     Indication: URINARY TRACT INFECTION
     Dosage: 1 G, QD
     Route: 048

REACTIONS (24)
  - Nitrituria [Unknown]
  - Rash [Unknown]
  - Platelet count decreased [Unknown]
  - Mean cell volume decreased [Unknown]
  - Red blood cell count increased [Unknown]
  - Immune system disorder [Unknown]
  - Monocyte count decreased [Unknown]
  - Asthenia [Unknown]
  - White blood cell count increased [Unknown]
  - Diarrhoea [Unknown]
  - Lymphocyte count decreased [Unknown]
  - Neutrophil count increased [Unknown]
  - Drug hypersensitivity [Unknown]
  - Eosinophil count decreased [Unknown]
  - White blood cells urine [Unknown]
  - Haematuria [Unknown]
  - Gastrointestinal infection [Recovered/Resolved]
  - Urinary tract infection [Not Recovered/Not Resolved]
  - Monocyte count increased [Unknown]
  - Lymphocyte count increased [Unknown]
  - Proteinuria [Unknown]
  - Occult blood positive [Unknown]
  - Red cell distribution width decreased [Unknown]
  - Mean cell haemoglobin concentration increased [Unknown]

NARRATIVE: CASE EVENT DATE: 20151121
